FAERS Safety Report 7819329-X (Version None)
Quarter: 2011Q4

REPORT INFORMATION
  Report Type: 
  Country: None (occurrence: None)
  Receive Date: 20111018
  Receipt Date: 20101021
  Transmission Date: 20120403
  Serious: No
  Sender: FDA-Public Use
  Company Number: US-ASTRAZENECA-2010SE50076

PATIENT
  Age: 46 Year
  Sex: Female
  Weight: 73.5 kg

DRUGS (11)
  1. ATIVAN [Concomitant]
  2. LISINOPRIL [Concomitant]
  3. SYMBICORT [Suspect]
     Indication: CHRONIC OBSTRUCTIVE PULMONARY DISEASE
     Dosage: 320/9 UG TWO TIMES A DAY
     Route: 055
     Dates: start: 20100501
  4. SPIRIVA [Concomitant]
  5. THEOPHYLLINE [Concomitant]
  6. CARTIA XT [Concomitant]
  7. VICODAN [Concomitant]
  8. FLU SHOT [Concomitant]
  9. PLAVIX [Concomitant]
  10. VENTOLIN [Concomitant]
  11. OXYGEN [Concomitant]

REACTIONS (5)
  - BACK PAIN [None]
  - NASAL CONGESTION [None]
  - DYSPNOEA [None]
  - HEADACHE [None]
  - SINUSITIS [None]
